FAERS Safety Report 22090116 (Version 1)
Quarter: 2023Q1

REPORT INFORMATION
  Report Type: Spontaneous
  Country: US (occurrence: US)
  Receive Date: 20230313
  Receipt Date: 20230313
  Transmission Date: 20230418
  Serious: Yes (Hospitalization, Other)
  Sender: FDA-Public Use
  Company Number: US-GLAXOSMITHKLINE-US2023GSK036213

PATIENT

DRUGS (1)
  1. SUMATRIPTAN [Suspect]
     Active Substance: SUMATRIPTAN
     Indication: Migraine
     Dosage: UNK

REACTIONS (4)
  - Stress cardiomyopathy [Recovered/Resolved]
  - Chest discomfort [Recovered/Resolved]
  - Acute myocardial infarction [Recovered/Resolved]
  - Ventricular hypokinesia [Recovered/Resolved]
